FAERS Safety Report 8021348-8 (Version None)
Quarter: 2011Q4

REPORT INFORMATION
  Report Type: 
  Country: None (occurrence: None)
  Receive Date: 20111229
  Receipt Date: 20111220
  Transmission Date: 20120403
  Serious: Yes (Other)
  Sender: FDA-Public Use
  Company Number: 1000026500

PATIENT
  Age: 51 Year
  Sex: Female
  Weight: 68.95 kg

DRUGS (18)
  1. LUTEIN (LUTEIN) (LUTEIN) [Concomitant]
  2. VITAMINS (VITAMINS) (VITAMINS) [Concomitant]
  3. ARICEPT [Concomitant]
  4. CHANTIX (VARENICLINE TARTRATE) (TABLETS) (VARENICLINE TARTRATE) [Concomitant]
  5. ENABLEX (DARIFENACIN) (DARIFENACIN) [Concomitant]
  6. LOSARTAN (LOSARTAN) (LOSARTAN) [Concomitant]
  7. BENZONATATE (BENZONATATE) (BENZONATATE) [Concomitant]
  8. LEVOXYL (LEVOTHYROXINE SODIUM) (OEVOTHYROXINE SODIUM) [Concomitant]
  9. LAMOTRIGINE [Concomitant]
  10. TRAMADOL HCL [Concomitant]
  11. VITAMIN D (VITAMIN D) (VITAMIN D) [Concomitant]
  12. THEOPHYLLINE ER (THEOPHYLLINE) (THEOPHYLLINE) [Concomitant]
  13. VITAMIN C (VITAMIN C) (VITAMIN C) [Concomitant]
  14. CELEXA [Suspect]
     Indication: BIPOLAR DISORDER
     Dosage: 40 MG (40 MG, 1 IN 1D), ORAL
     Route: 048
     Dates: start: 20111101, end: 20111101
  15. OMEPRAZOLE [Concomitant]
  16. TOPIRAMATE [Concomitant]
  17. XANAX [Concomitant]
  18. IRON (IRON) (IRON) [Concomitant]

REACTIONS (7)
  - SOMNOLENCE [None]
  - TREMOR [None]
  - FATIGUE [None]
  - PHOTOSENSITIVITY REACTION [None]
  - OFF LABEL USE [None]
  - ANXIETY [None]
  - WRONG TECHNIQUE IN DRUG USAGE PROCESS [None]
